FAERS Safety Report 9949114 (Version 1)
Quarter: 2014Q1

REPORT INFORMATION
  Report Type: Spontaneous
  Country: DE (occurrence: DE)
  Receive Date: 20140304
  Receipt Date: 20140304
  Transmission Date: 20141002
  Serious: Yes (Other)
  Sender: FDA-Public Use
  Company Number: DE-ROCHE-1355545

PATIENT
  Age: 65 Year
  Sex: Female

DRUGS (1)
  1. ZELBORAF [Suspect]
     Indication: PRODUCT USED FOR UNKNOWN INDICATION
     Route: 065

REACTIONS (6)
  - Monoparesis [Unknown]
  - Monoparesis [Unknown]
  - Sensory loss [Unknown]
  - Transaminases increased [Unknown]
  - Formication [Unknown]
  - Pain [Unknown]
